FAERS Safety Report 4806341-8 (Version None)
Quarter: 2005Q4

REPORT INFORMATION
  Report Type: 
  Country: None (occurrence: None)
  Receive Date: 20051019
  Receipt Date: 20051011
  Transmission Date: 20060501
  Serious: Yes (Hospitalization, Disabling, Other)
  Sender: FDA-Public Use
  Company Number: 2005141210

PATIENT
  Age: 55 Year
  Sex: Female
  Weight: 81.6475 kg

DRUGS (5)
  1. NEURONTIN [Suspect]
     Indication: PAIN
     Dates: start: 20020501, end: 20050101
  2. CHOLESTEROL (CHOLESTEROL) [Concomitant]
  3. CARDIAC THERAPY (CARDIAC THERAPY) [Concomitant]
  4. ANTIDEPRESSANTS (ANTIDEPRESSANTS) [Concomitant]
  5. ANXIOLYTICS (ANXIOLYTICS) [Concomitant]

REACTIONS (6)
  - DRUG EFFECT DECREASED [None]
  - DRUG INEFFECTIVE [None]
  - FEELING ABNORMAL [None]
  - HEMIPLEGIA [None]
  - IATROGENIC INJURY [None]
  - NEURALGIA [None]
